FAERS Safety Report 10003892 (Version 1)
Quarter: 2014Q1

REPORT INFORMATION
  Report Type: Spontaneous
  Country: US (occurrence: US)
  Receive Date: 20140312
  Receipt Date: 20140312
  Transmission Date: 20141002
  Serious: No
  Sender: FDA-Public Use
  Company Number: US-INCYTE CORPORATION-2014IN000157

PATIENT
  Sex: Male
  Weight: 54.42 kg

DRUGS (14)
  1. JAKAFI [Suspect]
     Indication: MYELOFIBROSIS
     Dosage: 15 MG, BID
     Route: 048
     Dates: start: 201212
  2. JAKAFI [Suspect]
     Dosage: 5 MG, QD
     Route: 048
  3. ALBUTEROL HFA [Concomitant]
  4. CLONIDINE [Concomitant]
  5. FLEXERIL                           /00428402/ [Concomitant]
  6. LOMOTIL                            /00034001/ [Concomitant]
  7. GABAPENTIN [Concomitant]
  8. OMEPRAZOLE [Concomitant]
  9. PAROXETINE [Concomitant]
  10. PROMETHAZINE [Concomitant]
  11. ZAFIRLUKAST [Concomitant]
  12. REGLAN                             /00041901/ [Concomitant]
  13. HYDROCODONE/APAP [Concomitant]
  14. COMBIVENT [Concomitant]

REACTIONS (1)
  - Fatigue [Unknown]
